FAERS Safety Report 17147474 (Version 1)
Quarter: 2019Q4

REPORT INFORMATION
  Report Type: Spontaneous
  Country: US (occurrence: US)
  Receive Date: 20191212
  Receipt Date: 20191212
  Transmission Date: 20200122
  Serious: No
  Sender: FDA-Public Use
  Company Number: US-AMERICAN REGENT INC-20191295

PATIENT
  Sex: Female

DRUGS (1)
  1. VENOFER [Suspect]
     Active Substance: IRON SUCROSE
     Dosage: 300 MG  90 MINUTES
     Route: 042

REACTIONS (5)
  - Exposure during pregnancy [Unknown]
  - Pruritus [Recovered/Resolved]
  - Skin tightness [Unknown]
  - Sensory disturbance [Recovered/Resolved]
  - Burning sensation [Recovered/Resolved]
